FAERS Safety Report 12455070 (Version 1)
Quarter: 2016Q2

REPORT INFORMATION
  Report Type: Spontaneous
  Country: US (occurrence: US)
  Receive Date: 20160610
  Receipt Date: 20160610
  Transmission Date: 20160815
  Serious: Yes (Death, Other)
  Sender: FDA-Public Use
  Company Number: US-009507513-1606USA003963

PATIENT
  Sex: Male

DRUGS (5)
  1. KEYTRUDA [Suspect]
     Active Substance: PEMBROLIZUMAB
     Dosage: TAKEN OFF AFTER 3 TREATMENTS
     Dates: start: 201506, end: 2015
  2. TAFINLAR [Suspect]
     Active Substance: DABRAFENIB MESYLATE
     Dosage: UNK
     Dates: start: 2015
  3. MEKINIST [Suspect]
     Active Substance: TRAMETINIB DIMETHYL SULFOXIDE
     Dosage: UNK
     Dates: start: 2015
  4. KEYTRUDA [Suspect]
     Active Substance: PEMBROLIZUMAB
     Dosage: UNK
     Dates: start: 201511, end: 201601
  5. PRIALT [Concomitant]
     Active Substance: ZICONOTIDE ACETATE
     Indication: PAIN
     Dosage: UNK
     Route: 037

REACTIONS (6)
  - General physical health deterioration [Not Recovered/Not Resolved]
  - Pathological fracture [Unknown]
  - Liver function test increased [Unknown]
  - Urinary retention [Unknown]
  - Metabolic disorder [Unknown]
  - Malignant neoplasm progression [Fatal]

NARRATIVE: CASE EVENT DATE: 2016
